FAERS Safety Report 8459892-1 (Version None)
Quarter: 2012Q2

REPORT INFORMATION
  Report Type: 
  Country: None (occurrence: None)
  Receive Date: 20120622
  Receipt Date: 20120614
  Transmission Date: 20120825
  Serious: Yes (Other)
  Sender: FDA-Public Use
  Company Number: PHHY2012MX052567

PATIENT
  Sex: Female

DRUGS (3)
  1. DIOVAN [Suspect]
     Indication: HYPERTENSION
     Dosage: 80 MG, TWICE A DAY
     Dates: start: 20120101
  2. METFORMIN HCL [Suspect]
     Indication: DIABETES MELLITUS
     Dosage: 50 MG, ONCE A DAY
     Dates: start: 20120101
  3. PREXIGE [Suspect]
     Dosage: 400 MG, BY DAY
     Dates: start: 20120401

REACTIONS (2)
  - PLEURISY [None]
  - RESPIRATORY DISORDER [None]
